FAERS Safety Report 7179767 (Version 3)
Quarter: 2014Q1

REPORT INFORMATION
  Report Type: Spontaneous
  Country: US (occurrence: None)
  Receive Date: 20091118
  Receipt Date: 20130301
  Transmission Date: 20141002
  Serious: Yes (Hospitalization)
  Sender: FDA-Public Use
  Company Number: US-JNJFOC-20091102755

PATIENT
  Age: 78 Year
  Sex: Female
  Weight: 69 kg

DRUGS (7)
  1. IBUPROFEN [Suspect]
     Indication: ARTHRITIS
     Dosage: 400 MG, 1 IN 1 AS NECESSARY
     Route: 048
     Dates: start: 2006
  2. ASPIRIN [Suspect]
     Indication: ROUTINE HEALTH MAINTENANCE
     Dosage: 81 MG, 1 IN 1 DAY, ORAL
     Route: 048
     Dates: start: 1968
  3. FOSAMAX [Suspect]
     Indication: OSTEOPOROSIS
     Dosage: 70 MG, 1 IN 1 WEEK, ORAL
     Route: 048
     Dates: start: 2006, end: 20090927
  4. BAPINEUZUMAB (MONOCLONAL ANTIBODIES) [Concomitant]
  5. EXELON [Concomitant]
  6. NAMENDA [Concomitant]
  7. VERAPAMIL HYDROCHLORIDE [Concomitant]

REACTIONS (2)
  - Gastric ulcer [None]
  - Upper gastrointestinal haemorrhage [None]
